FAERS Safety Report 6376125-0 (Version None)
Quarter: 2009Q3

REPORT INFORMATION
  Report Type: 
  Country: None (occurrence: None)
  Receive Date: 20090918
  Receipt Date: 20090911
  Transmission Date: 20100115
  Serious: Yes (Other)
  Sender: FDA-Public Use
  Company Number: 377425

PATIENT
  Age: 24 Year
  Sex: Female

DRUGS (1)
  1. EPINEPHRINE [Suspect]
     Indication: ANAPHYLACTIC REACTION
     Dosage: 5 MG, INTRAMUSCULAR
     Route: 030

REACTIONS (13)
  - ANURIA [None]
  - BLOOD CREATINE PHOSPHOKINASE INCREASED [None]
  - BLOOD GLUCOSE INCREASED [None]
  - BLOOD POTASSIUM DECREASED [None]
  - BLOOD PRESSURE INCREASED [None]
  - ELECTROCARDIOGRAM ST SEGMENT DEPRESSION [None]
  - INCORRECT DOSE ADMINISTERED [None]
  - NAUSEA [None]
  - SHOCK [None]
  - SINUS TACHYCARDIA [None]
  - STRESS CARDIOMYOPATHY [None]
  - TREMOR [None]
  - VOMITING [None]
